FAERS Safety Report 5309236-9 (Version None)
Quarter: 2007Q2

REPORT INFORMATION
  Report Type: 
  Country: None (occurrence: None)
  Receive Date: 20070426
  Receipt Date: 20070420
  Transmission Date: 20071010
  Serious: Yes (Life-Threatening, Hospitalization)
  Sender: FDA-Public Use
  Company Number: JP-ABBOTT-07P-087-0365617-00

PATIENT
  Age: 41 Year
  Sex: Male
  Weight: 54 kg

DRUGS (13)
  1. CLARITHROMYCIN [Suspect]
     Indication: ASTHMA
     Route: 048
     Dates: start: 20060916, end: 20070116
  2. TUMURA SEIHAI-TO [Suspect]
     Indication: ASTHMA
     Route: 048
  3. TUMURA BAKUMONDO-TO [Suspect]
     Indication: ASTHMA
     Route: 048
     Dates: start: 20060729, end: 20070115
  4. TUMURA SHOSEIRVU-TO [Suspect]
     Indication: ASTHMA
     Route: 048
     Dates: start: 20061211, end: 20061225
  5. TUMURA SALBOKU-TO [Suspect]
     Indication: ASTHMA
     Route: 048
     Dates: start: 20061225, end: 20070115
  6. TUMURA SAIKOKEISHI-TO [Suspect]
     Indication: ASTHMA
     Route: 048
     Dates: start: 20061225, end: 20070115
  7. LEVOFLOXACIN [Suspect]
     Indication: EOSINOPHILIC PNEUMONIA
     Route: 048
     Dates: start: 20070101, end: 20070101
  8. THEOPHYLLINE [Concomitant]
     Indication: ASTHMA
     Route: 048
     Dates: start: 20060729, end: 20070115
  9. LORATADINE [Concomitant]
     Indication: ASTHMA
     Route: 048
     Dates: start: 20060812, end: 20070115
  10. BUDESONIDE [Concomitant]
     Indication: ASTHMA
     Route: 055
     Dates: start: 20060729, end: 20070115
  11. HUSCODE [Concomitant]
     Indication: ASTHMA
     Route: 048
     Dates: start: 20060916, end: 20070115
  12. L-CARBOCISTEINE [Concomitant]
     Indication: ASTHMA
     Route: 048
     Dates: start: 20060916, end: 20070115
  13. PURIFIED WATER [Concomitant]
     Indication: ASTHMA
     Route: 048
     Dates: start: 20060916, end: 20070115

REACTIONS (3)
  - DRUG HYPERSENSITIVITY [None]
  - EOSINOPHILIC PNEUMONIA [None]
  - MALAISE [None]
